FAERS Safety Report 17080205 (Version 3)
Quarter: 2020Q1

REPORT INFORMATION
  Report Type: Report from Study
  Country: None (occurrence: US)
  Receive Date: 20191127
  Receipt Date: 20200312
  Transmission Date: 20200409
  Serious: Yes (Hospitalization, Other)
  Sender: FDA-Public Use
  Company Number: US-ABBVIE-19K-163-3156151-00

PATIENT
  Age: 89 Year
  Sex: Male

DRUGS (3)
  1. IMBRUVICA [Suspect]
     Active Substance: IBRUTINIB
     Dosage: 280 MG, QD
     Route: 065
  2. IMBRUVICA [Suspect]
     Active Substance: IBRUTINIB
     Route: 048
  3. IMBRUVICA [Suspect]
     Active Substance: IBRUTINIB
     Indication: CHRONIC LYMPHOCYTIC LEUKAEMIA
     Dosage: 140 MG, TID
     Route: 048
     Dates: start: 20190508

REACTIONS (11)
  - Retinal vein occlusion [Unknown]
  - Haematuria [Unknown]
  - Hypertension [Recovered/Resolved]
  - Fatigue [Unknown]
  - Blindness unilateral [Unknown]
  - White blood cell count abnormal [Recovering/Resolving]
  - Inappropriate schedule of product administration [Unknown]
  - Atrial fibrillation [Unknown]
  - Basal cell carcinoma [Unknown]
  - Hypertensive encephalopathy [Recovered/Resolved]
  - Mobility decreased [Unknown]

NARRATIVE: CASE EVENT DATE: 201905
